FAERS Safety Report 7050520-9 (Version None)
Quarter: 2010Q4

REPORT INFORMATION
  Report Type: 
  Country: None (occurrence: None)
  Receive Date: 20101018
  Receipt Date: 20101013
  Transmission Date: 20110411
  Serious: Yes (Hospitalization)
  Sender: FDA-Public Use
  Company Number: US-WYE-H16295610

PATIENT
  Age: 78 Year
  Sex: Male
  Weight: 81 kg

DRUGS (14)
  1. TORISEL [Suspect]
     Indication: LEIOMYOSARCOMA
     Route: 042
     Dates: start: 20100527, end: 20100617
  2. SIMVASTATIN [Concomitant]
  3. TERAZOSIN HCL [Concomitant]
  4. FINASTERIDE [Concomitant]
  5. PROTONIX [Concomitant]
  6. OSCAL [Concomitant]
  7. OXYCODONE HCL [Concomitant]
  8. TYLENOL-500 [Concomitant]
  9. METFORMIN HCL [Concomitant]
  10. MULTI-VITAMINS [Concomitant]
  11. FISH OIL, HYDROGENATED [Concomitant]
  12. VITAMIN B6 [Concomitant]
  13. METOPROLOL [Concomitant]
  14. LYRICA [Concomitant]

REACTIONS (1)
  - DYSPHAGIA [None]
